FAERS Safety Report 6506237-X (Version None)
Quarter: 2009Q4

REPORT INFORMATION
  Report Type: 
  Country: None (occurrence: None)
  Receive Date: 20091218
  Receipt Date: 20091214
  Transmission Date: 20100525
  Serious: Yes (Death, Hospitalization)
  Sender: FDA-Public Use
  Company Number: PHHY2009US55267

PATIENT
  Age: 66 Year
  Sex: Female

DRUGS (2)
  1. CYCLOSPORINE [Suspect]
     Indication: APLASIA PURE RED CELL
     Dosage: 100 MG, BID
     Route: 048
  2. PREDNISONE [Suspect]
     Indication: APLASIA PURE RED CELL
     Dosage: 1 MG/KG DAILY
     Route: 048

REACTIONS (6)
  - ACUTE MYELOID LEUKAEMIA [None]
  - DYSPNOEA EXERTIONAL [None]
  - HEPATIC FAILURE [None]
  - LEUKOCYTOSIS [None]
  - MONOCYTOSIS [None]
  - PERFORMANCE STATUS DECREASED [None]
